FAERS Safety Report 9445998 (Version 2)
Quarter: 2013Q3

REPORT INFORMATION
  Report Type: Report from Study
  Country: BR (occurrence: BR)
  Receive Date: 20130807
  Receipt Date: 20130827
  Transmission Date: 20140515
  Serious: Yes (Other)
  Sender: FDA-Public Use
  Company Number: ALCN2013BR003996

PATIENT
  Sex: 0

DRUGS (9)
  1. TRAVATAN [Suspect]
     Indication: GLAUCOMA
     Dosage: `1 GTT, QD
     Route: 047
     Dates: start: 1998
  2. AZOPT [Suspect]
     Indication: GLAUCOMA
     Dosage: 2 GTT, BID
     Route: 047
     Dates: start: 2003
  3. SALICYLIC ACID [Concomitant]
     Dosage: 100 MG, UNK
  4. MICARDIS [Concomitant]
     Indication: HYPERTENSION
     Dosage: 80 MG, UNK
  5. GLICOSE [Concomitant]
     Indication: DIABETES MELLITUS
     Dosage: 200 MG, UNK
  6. CALTREN [Concomitant]
     Indication: HYPERTENSION
     Dosage: UNK
  7. OMEGA 3 [Concomitant]
     Dosage: UNK
  8. ARTICOLASE [Concomitant]
     Indication: OSTEOARTHRITIS
     Dosage: UNK
     Dates: start: 201304
  9. CALCIUM D                          /00944201/ [Concomitant]
     Indication: OSTEOARTHRITIS
     Dosage: UNK
     Dates: start: 201304

REACTIONS (2)
  - Fall [Unknown]
  - Femur fracture [Unknown]
